FAERS Safety Report 11219963 (Version 1)
Quarter: 2015Q2

REPORT INFORMATION
  Report Type: Spontaneous
  Country: GB (occurrence: None)
  Receive Date: 20150624
  Receipt Date: 20150624
  Transmission Date: 20150821
  Serious: Yes (Hospitalization)
  Sender: FDA-Public Use
  Company Number: US-2015EGA000065

PATIENT
  Age: 79 Year
  Sex: Male
  Weight: 80.3 kg

DRUGS (13)
  1. PROVENGE (SIPULEUCEL-T) [Concomitant]
  2. IBUPROFEN. [Concomitant]
     Active Substance: IBUPROFEN
  3. CEFUROXIME. [Concomitant]
     Active Substance: CEFUROXIME
  4. TAMSULOSIN [Concomitant]
     Active Substance: TAMSULOSIN
  5. VENLAFAXINE HCL [Concomitant]
     Active Substance: VENLAFAXINE HYDROCHLORIDE
  6. K-TAB (POTASSIUM CHLORIDE) [Concomitant]
  7. OXYCODONE HYDROCHLORIDE. [Suspect]
     Active Substance: OXYCODONE HYDROCHLORIDE
     Indication: PAIN
     Dosage: Q4H
     Route: 048
     Dates: end: 20140803
  8. METOPROLOL TARTRATE. [Concomitant]
     Active Substance: METOPROLOL TARTRATE
  9. POTASSIUM [Concomitant]
     Active Substance: POTASSIUM
  10. MS CONTIN [Suspect]
     Active Substance: MORPHINE SULFATE
     Indication: PAIN
     Dates: end: 20140803
  11. FUROSEMIDE. [Concomitant]
     Active Substance: FUROSEMIDE
  12. ACETAMINOPHEN (PARACETAMOL) [Concomitant]
     Active Substance: ACETAMINOPHEN
  13. LEUPRORELIN [Concomitant]
     Active Substance: LEUPROLIDE ACETATE

REACTIONS (12)
  - Urinary tract infection [None]
  - Pneumonia [None]
  - Dehydration [None]
  - Atrial tachycardia [None]
  - Pyrexia [None]
  - Acute kidney injury [None]
  - Mental status changes [None]
  - Hyponatraemia [None]
  - Confusional state [None]
  - Anaemia [None]
  - Hypovolaemia [None]
  - Bladder neck obstruction [None]
